FAERS Safety Report 16701483 (Version 1)
Quarter: 2019Q3

REPORT INFORMATION
  Report Type: Spontaneous
  Country: US (occurrence: US)
  Receive Date: 20190814
  Receipt Date: 20190814
  Transmission Date: 20191004
  Serious: Yes (Hospitalization, Other)
  Sender: FDA-Public Use
  Company Number: US-PFIZER INC-2019342475

PATIENT
  Age: 48 Year
  Sex: Female

DRUGS (25)
  1. DELTASONE [Suspect]
     Active Substance: PREDNISONE
     Dosage: 30 MG, UNK (3 DAYS)
     Route: 048
  2. DYMISTA [Concomitant]
     Active Substance: AZELASTINE HYDROCHLORIDE\FLUTICASONE PROPIONATE
     Dosage: UNK
  3. TYLENOL [Concomitant]
     Active Substance: ACETAMINOPHEN
     Dosage: UNK
  4. DELTASONE [Suspect]
     Active Substance: PREDNISONE
     Indication: OPTIC NEURITIS
     Dosage: 40 MG, UNK (3 DAYS)
     Route: 048
     Dates: start: 201905
  5. PREDNISONE. [Suspect]
     Active Substance: PREDNISONE
     Indication: OPTIC NEURITIS
     Dosage: 1000 MG, UNK
     Route: 042
     Dates: start: 201905
  6. PROVENTIL HFA [SALBUTAMOL] [Concomitant]
     Dosage: UNK
  7. KLOR-CON [Concomitant]
     Active Substance: POTASSIUM CHLORIDE
  8. DELTASONE [Suspect]
     Active Substance: PREDNISONE
     Dosage: UNK(LESSER DOSE)
     Route: 048
  9. PREDNISONE. [Suspect]
     Active Substance: PREDNISONE
     Dosage: UNK(LESSER DOSE)
     Route: 048
  10. BENTYL [Concomitant]
     Active Substance: DICYCLOMINE HYDROCHLORIDE
     Dosage: UNK
  11. PROAIR HFA [Concomitant]
     Active Substance: ALBUTEROL SULFATE
     Dosage: UNK
  12. PERCOCET [Concomitant]
     Active Substance: ACETAMINOPHEN\OXYCODONE HYDROCHLORIDE
  13. IMITREX [Concomitant]
     Active Substance: SUMATRIPTAN SUCCINATE
     Dosage: UNK
  14. NITROSTAT [Concomitant]
     Active Substance: NITROGLYCERIN
     Dosage: UNK
     Route: 060
  15. PANTOPRAZOLE [Concomitant]
     Active Substance: PANTOPRAZOLE
     Dosage: UNK
  16. AIMOVIG [Suspect]
     Active Substance: ERENUMAB-AOOE
     Indication: PRODUCT USED FOR UNKNOWN INDICATION
     Dosage: 70 MG, MONTHLY(QMO)
     Route: 058
     Dates: start: 20190405
  17. SOMA [Concomitant]
     Active Substance: CARISOPRODOL
  18. K-DUR [Concomitant]
     Active Substance: POTASSIUM CHLORIDE
  19. MEDROL [Suspect]
     Active Substance: METHYLPREDNISOLONE
     Indication: OPTIC NEURITIS
     Dosage: 4 MG, UNK
     Route: 048
     Dates: start: 201905
  20. PHENERGAN [Concomitant]
     Active Substance: PROMETHAZINE HYDROCHLORIDE
     Indication: GASTROINTESTINAL PAIN
     Dosage: UNK
  21. MEDROL [Suspect]
     Active Substance: METHYLPREDNISOLONE
     Dosage: UNK(LESSER DOSE)
     Route: 048
  22. DELTASONE [Suspect]
     Active Substance: PREDNISONE
     Dosage: 20 MG, UNK (3 DAYS)
     Route: 048
  23. VENTOLIN HFA [Concomitant]
     Active Substance: ALBUTEROL SULFATE
     Dosage: UNK
  24. PRINIVIL [Concomitant]
     Active Substance: LISINOPRIL
     Dosage: UNK
  25. XANAX [Concomitant]
     Active Substance: ALPRAZOLAM

REACTIONS (34)
  - Eye swelling [Recovering/Resolving]
  - Visual impairment [Recovering/Resolving]
  - Blood pressure decreased [Recovering/Resolving]
  - Asthenia [Recovering/Resolving]
  - Depression [Unknown]
  - Bone disorder [Unknown]
  - Vision blurred [Recovering/Resolving]
  - Bone disorder [Recovering/Resolving]
  - Feeling abnormal [Recovering/Resolving]
  - Feeling abnormal [Unknown]
  - Pain [Recovering/Resolving]
  - Insomnia [Recovering/Resolving]
  - Memory impairment [Recovering/Resolving]
  - Loss of consciousness [Recovering/Resolving]
  - Hypersensitivity [Recovering/Resolving]
  - Abdominal pain upper [Recovering/Resolving]
  - Loss of personal independence in daily activities [Unknown]
  - Fear of death [Recovering/Resolving]
  - Injection site pain [Unknown]
  - Eye pain [Recovering/Resolving]
  - Dry mouth [Recovering/Resolving]
  - Psychiatric symptom [Unknown]
  - Optic neuritis [Recovering/Resolving]
  - Muscle spasms [Unknown]
  - Headache [Recovering/Resolving]
  - Hallucination [Recovering/Resolving]
  - Tension headache [Recovering/Resolving]
  - Nausea [Recovered/Resolved]
  - Multiple sclerosis [Recovering/Resolving]
  - Fall [Unknown]
  - Hyperhidrosis [Recovering/Resolving]
  - Hyperhidrosis [Unknown]
  - Maternal exposure during pregnancy [Unknown]
  - Anxiety [Recovering/Resolving]

NARRATIVE: CASE EVENT DATE: 20190405
